FAERS Safety Report 7053839-0 (Version None)
Quarter: 2010Q4

REPORT INFORMATION
  Report Type: 
  Country: None (occurrence: None)
  Receive Date: 20101020
  Receipt Date: 20101012
  Transmission Date: 20110411
  Serious: Yes (Hospitalization)
  Sender: FDA-Public Use
  Company Number: PHHO2010SK10202

PATIENT
  Sex: Male
  Weight: 89 kg

DRUGS (2)
  1. NEORAL [Suspect]
     Indication: RENAL TRANSPLANT
     Dosage: UNK
     Route: 048
     Dates: start: 20100524
  2. CERTICAN [Concomitant]
     Indication: RENAL TRANSPLANT
     Dosage: UNK
     Route: 048
     Dates: start: 20100826

REACTIONS (12)
  - BLOOD CREATININE INCREASED [None]
  - CONCOMITANT DISEASE PROGRESSION [None]
  - CONGENITAL CYSTIC KIDNEY DISEASE [None]
  - HAEMATURIA [None]
  - HAEMORRHAGIC CYST [None]
  - NEPHRECTOMY [None]
  - PYREXIA [None]
  - RENAL PAIN [None]
  - URETEROSCOPY [None]
  - URINARY TRACT INFECTION [None]
  - URINE ABNORMALITY [None]
  - UROSEPSIS [None]
